FAERS Safety Report 7335546-X (Version None)
Quarter: 2011Q1

REPORT INFORMATION
  Report Type: 
  Country: None (occurrence: None)
  Receive Date: 20110307
  Receipt Date: 20110228
  Transmission Date: 20110831
  Serious: Yes (Other)
  Sender: FDA-Public Use
  Company Number: BR-PFIZER INC-2011043193

PATIENT
  Age: 47 Year
  Sex: Female
  Weight: 93 kg

DRUGS (5)
  1. ENALAPRIL [Concomitant]
     Dosage: UNK
  2. OMEPRAZOLE [Concomitant]
     Dosage: UNK
  3. HYDROCHLOROTHIAZIDE [Concomitant]
     Dosage: UNK
  4. LYRICA [Suspect]
     Indication: BACK PAIN
     Dosage: 150 MG, UNK
     Route: 048
  5. ALPRAZOLAM [Concomitant]
     Dosage: UNK

REACTIONS (8)
  - DYSPHEMIA [None]
  - FEELING HOT [None]
  - PERIPHERAL COLDNESS [None]
  - NERVOUSNESS [None]
  - BLOOD PRESSURE INCREASED [None]
  - SLEEP DISORDER [None]
  - THINKING ABNORMAL [None]
  - PAIN [None]
